FAERS Safety Report 5419334-7 (Version None)
Quarter: 2007Q3

REPORT INFORMATION
  Report Type: 
  Country: None (occurrence: None)
  Receive Date: 20070820
  Receipt Date: 20070809
  Transmission Date: 20080115
  Serious: Yes (Hospitalization)
  Sender: FDA-Public Use
  Company Number: US-KINGPHARMUSA00001-K200701012

PATIENT

DRUGS (8)
  1. FLORINEF [Suspect]
     Dosage: 5 MCG, QD MORNING
  2. ASPIRIN [Concomitant]
  3. FOLIC ACID [Concomitant]
  4. MOVICOL    /01053601/ [Concomitant]
  5. GLYCERYL TRINITRATE [Concomitant]
     Dosage: UNK, PRN
  6. PARACETAMOL [Concomitant]
     Dosage: UNK, PRN
  7. LANSOPRAZOLE [Concomitant]
  8. ATORVASTATIN CALCIUM [Concomitant]

REACTIONS (2)
  - CEREBROVASCULAR ACCIDENT [None]
  - DYSPHAGIA [None]
